FAERS Safety Report 8107283-5 (Version None)
Quarter: 2012Q1

REPORT INFORMATION
  Report Type: 
  Country: None (occurrence: None)
  Receive Date: 20120202
  Receipt Date: 20120126
  Transmission Date: 20120608
  Serious: Yes (Other)
  Sender: FDA-Public Use
  Company Number: JP-PFIZER INC-2012022329

PATIENT
  Age: 52 Year

DRUGS (1)
  1. SOLU-MEDROL [Suspect]
     Dosage: 1000 MG/DAY
     Route: 042
     Dates: start: 20120126, end: 20120126

REACTIONS (3)
  - HYPOAESTHESIA [None]
  - HEART RATE DECREASED [None]
  - BLOOD PRESSURE DECREASED [None]
